FAERS Safety Report 7060956-8 (Version None)
Quarter: 2010Q4

REPORT INFORMATION
  Report Type: 
  Country: None (occurrence: None)
  Receive Date: 20101026
  Receipt Date: 20101018
  Transmission Date: 20110411
  Serious: Yes (Hospitalization)
  Sender: FDA-Public Use
  Company Number: US-BIOGENIDEC-2009BI002656

PATIENT
  Age: 44 Year
  Sex: Female
  Weight: 63 kg

DRUGS (1)
  1. AVONEX [Suspect]
     Indication: MULTIPLE SCLEROSIS
     Route: 030
     Dates: start: 20080707, end: 20090315

REACTIONS (5)
  - BLOOD POTASSIUM DECREASED [None]
  - IMPAIRED HEALING [None]
  - STAPHYLOCOCCAL SKIN INFECTION [None]
  - TONGUE CANCER METASTATIC [None]
  - WHITE BLOOD CELL COUNT DECREASED [None]
